FAERS Safety Report 8345524-X (Version None)
Quarter: 2012Q2

REPORT INFORMATION
  Report Type: 
  Country: None (occurrence: None)
  Receive Date: 20120508
  Receipt Date: 20120501
  Transmission Date: 20120825
  Serious: Yes (Hospitalization)
  Sender: FDA-Public Use
  Company Number: US-ABBOTT-12P-163-0908635-01

PATIENT
  Sex: Female
  Weight: 108.05 kg

DRUGS (7)
  1. ASPIRIN [Concomitant]
     Indication: TRANSIENT ISCHAEMIC ATTACK
     Dates: start: 20081110
  2. HUMIRA [Suspect]
     Indication: PSORIASIS
     Route: 058
     Dates: start: 20071025, end: 20071025
  3. HUMIRA [Suspect]
     Route: 058
  4. CILOSTAZOL [Concomitant]
     Indication: TRANSIENT ISCHAEMIC ATTACK
     Dates: start: 20110201
  5. METHOTREXATE [Concomitant]
     Indication: PSORIASIS
     Dates: start: 19990701
  6. HUMIRA [Suspect]
     Route: 058
     Dates: start: 20100416
  7. PLAVIX [Concomitant]
     Indication: TRANSIENT ISCHAEMIC ATTACK
     Dates: start: 20081110

REACTIONS (1)
  - TRANSIENT ISCHAEMIC ATTACK [None]
